FAERS Safety Report 17563695 (Version 2)
Quarter: 2020Q2

REPORT INFORMATION
  Report Type: Spontaneous
  Country: US (occurrence: US)
  Receive Date: 20200320
  Receipt Date: 20200630
  Transmission Date: 20200713
  Serious: Yes (Death, Life-Threatening, Hospitalization, Other)
  Sender: FDA-Public Use
  Company Number: US-DRREDDYS-USA/USA/20/0120816

PATIENT
  Age: 8 Year
  Sex: Female

DRUGS (10)
  1. TOPOTECAN HYDROCHLORIDE FOR INJECTION [Suspect]
     Active Substance: TOPOTECAN HYDROCHLORIDE
     Indication: NEUROBLASTOMA
     Route: 065
     Dates: start: 2013
  2. DOXORUBICIN HYDROCHLORIDE LIPOSOME INJECTION 20 MG/10 ML (2 MG/ML) AND [Suspect]
     Active Substance: DOXORUBICIN HYDROCHLORIDE
     Indication: NEUROBLASTOMA
     Dates: start: 2013
  3. VINCRISTINE [Suspect]
     Active Substance: VINCRISTINE
     Indication: NEUROBLASTOMA
     Route: 065
     Dates: start: 2013
  4. CISPLATIN. [Suspect]
     Active Substance: CISPLATIN
     Indication: NEUROBLASTOMA
     Route: 065
     Dates: start: 2013
  5. ETOPOSIDE. [Suspect]
     Active Substance: ETOPOSIDE
     Indication: NEUROBLASTOMA
     Dosage: CONDITIONING CHEMOTHERAPY
     Route: 065
  6. CARBOPLATIN. [Suspect]
     Active Substance: CARBOPLATIN
     Indication: NEUROBLASTOMA
     Dosage: CONDITIONING CHEMOTHERAPY
     Route: 065
  7. ETOPOSIDE. [Suspect]
     Active Substance: ETOPOSIDE
     Route: 065
     Dates: start: 2013
  8. CYCLOPHOSPHAMIDE. [Suspect]
     Active Substance: CYCLOPHOSPHAMIDE
     Indication: NEUROBLASTOMA
     Route: 065
     Dates: start: 2013
  9. MELPHALAN HYDROCHLORIDE FOR INJECTION [Suspect]
     Active Substance: MELPHALAN HYDROCHLORIDE
     Indication: NEUROBLASTOMA
     Dosage: CONDITIONING CHEMOTHERAPY
     Route: 065
  10. RETINOIC ACID [Concomitant]
     Active Substance: TRETINOIN
     Indication: PRODUCT USED FOR UNKNOWN INDICATION
     Route: 065

REACTIONS (3)
  - Pneumothorax [Fatal]
  - Pulmonary fibrosis [Fatal]
  - Pulmonary hypertension [Fatal]

NARRATIVE: CASE EVENT DATE: 201603
